APPROVED DRUG PRODUCT: LEVONORGESTREL
Active Ingredient: LEVONORGESTREL
Strength: 1.5MG
Dosage Form/Route: TABLET;ORAL
Application: A202380 | Product #001
Applicant: NAARI PTE LTD
Approved: May 29, 2015 | RLD: No | RS: No | Type: OTC